FAERS Safety Report 17552816 (Version 1)
Quarter: 2020Q1

REPORT INFORMATION
  Report Type: Spontaneous
  Country: GR (occurrence: GR)
  Receive Date: 20200318
  Receipt Date: 20200318
  Transmission Date: 20200409
  Serious: Yes (Hospitalization, Other)
  Sender: FDA-Public Use
  Company Number: GR-ACCORD-176045

PATIENT
  Age: 50 Year
  Sex: Male

DRUGS (9)
  1. RETEPLASE [Suspect]
     Active Substance: RETEPLASE
     Indication: ACUTE MYOCARDIAL INFARCTION
     Dosage: FOLLOWED BY ANOTHER 10 U AFTER 30 MINUTES
     Route: 040
  2. ENOXAPARIN/ENOXAPARIN SODIUM [Suspect]
     Active Substance: ENOXAPARIN\ENOXAPARIN SODIUM
     Indication: ACUTE MYOCARDIAL INFARCTION
     Dosage: 70 MG (1 MG/KG, 100 MG MAX CUMULATIVE DOSE)
     Route: 040
  3. CLOPIDOGREL [Suspect]
     Active Substance: CLOPIDOGREL BISULFATE
     Indication: ACUTE MYOCARDIAL INFARCTION
  4. TICAGRELOR. [Suspect]
     Active Substance: TICAGRELOR
     Indication: ACUTE MYOCARDIAL INFARCTION
  5. ATORVASTATIN [Concomitant]
     Active Substance: ATORVASTATIN
     Dosage: 40 MG OD
  6. ACETYLSALICYLIC ACID [Suspect]
     Active Substance: ASPIRIN
     Indication: ACUTE MYOCARDIAL INFARCTION
     Dosage: REDUCED TO 100 MG
  7. PANTOPRAZOLE [Concomitant]
     Active Substance: PANTOPRAZOLE
     Dosage: 20 MG OD
  8. FUROSEMIDE. [Concomitant]
     Active Substance: FUROSEMIDE
     Dosage: 20 MG OD
  9. BISOPROLOL [Concomitant]
     Active Substance: BISOPROLOL
     Dosage: 5 MG OD

REACTIONS (1)
  - Extradural haematoma [Recovered/Resolved]
